FAERS Safety Report 18094449 (Version 1)
Quarter: 2020Q3

REPORT INFORMATION
  Report Type: Report from Study
  Country: None (occurrence: US)
  Receive Date: 20200731
  Receipt Date: 20200731
  Transmission Date: 20201103
  Serious: Yes (Hospitalization, Other)
  Sender: FDA-Public Use
  Company Number: US-ABBVIE-19K-163-2797612-00

PATIENT
  Sex: Female
  Weight: 105.33 kg

DRUGS (2)
  1. HUMIRA [Suspect]
     Active Substance: ADALIMUMAB
     Indication: HIDRADENITIS
     Route: 058
     Dates: start: 2018, end: 202004
  2. HUMIRA [Suspect]
     Active Substance: ADALIMUMAB
     Route: 058
     Dates: start: 202007

REACTIONS (13)
  - Foot operation [Recovering/Resolving]
  - Injection site rash [Recovered/Resolved]
  - Exostosis [Recovering/Resolving]
  - Bone graft [Unknown]
  - Injection site pain [Recovered/Resolved]
  - Skin fissures [Recovering/Resolving]
  - Post procedural infection [Unknown]
  - Impaired healing [Unknown]
  - Medical device removal [Unknown]
  - Rash [Unknown]
  - Cellulitis [Unknown]
  - Allergy to metals [Unknown]
  - Skin irritation [Recovering/Resolving]

NARRATIVE: CASE EVENT DATE: 2019
